FAERS Safety Report 6848265-0 (Version None)
Quarter: 2010Q3

REPORT INFORMATION
  Report Type: 
  Country: None (occurrence: None)
  Receive Date: 20100716
  Receipt Date: 20100701
  Transmission Date: 20110219
  Serious: Yes (Hospitalization, Other)
  Sender: FDA-Public Use
  Company Number: JP-ROCHE-642268

PATIENT
  Age: 83 Year
  Sex: Male

DRUGS (4)
  1. BEVACIZUMAB [Suspect]
     Dosage: UNK
     Route: 031
     Dates: start: 20090213
  2. BEVACIZUMAB [Suspect]
     Dosage: UNK
     Route: 031
     Dates: start: 20090323
  3. RANIBIZUMAB [Suspect]
     Dosage: 0.05 ML, UNK
     Route: 031
     Dates: start: 20090424
  4. TRIAMCINOLONE ACETONIDE [Suspect]
     Dosage: UNK
     Route: 050
     Dates: start: 20090213

REACTIONS (7)
  - CYTOMEGALOVIRUS CHORIORETINITIS [None]
  - EYE DISORDER [None]
  - EYE INFLAMMATION [None]
  - NECROSIS [None]
  - RETINAL DISORDER [None]
  - VASCULITIS [None]
  - VITRECTOMY [None]
